FAERS Safety Report 13554275 (Version 1)
Quarter: 2017Q2

REPORT INFORMATION
  Report Type: Spontaneous
  Country: GB (occurrence: GB)
  Receive Date: 20170517
  Receipt Date: 20170517
  Transmission Date: 20170830
  Serious: Yes (Other)
  Sender: FDA-Public Use
  Company Number: GB-ALVOGEN-2017-ALVOGEN-092141

PATIENT
  Sex: Female

DRUGS (3)
  1. ATENOLOL. [Suspect]
     Active Substance: ATENOLOL
     Indication: HYPERTENSION
     Dosage: SHE STARTED TAKING ORAL ATENOLOL (DOSAGE AND STRENGTH NOT KNOWN) ABOUT FOUR MONTHS AGO.
     Route: 048
  2. ATENOLOL. [Suspect]
     Active Substance: ATENOLOL
     Indication: HYPERTENSION
     Dosage: ADMINISTERING HALF TABLET OF 25 MG ONCE A DAY.
     Route: 048
  3. CANDESARTAN. [Concomitant]
     Active Substance: CANDESARTAN
     Indication: HYPERTENSION

REACTIONS (4)
  - Heart rate decreased [Unknown]
  - Wrong technique in product usage process [Unknown]
  - Tinnitus [Unknown]
  - Loss of consciousness [Unknown]
